FAERS Safety Report 7109090-9 (Version None)
Quarter: 2010Q4

REPORT INFORMATION
  Report Type: 
  Country: None (occurrence: None)
  Receive Date: 20101117
  Receipt Date: 20101104
  Transmission Date: 20110411
  Serious: Yes (Hospitalization)
  Sender: FDA-Public Use
  Company Number: PHHO2010KR16271

PATIENT
  Sex: Male
  Weight: 56 kg

DRUGS (4)
  1. AFINITOR [Suspect]
     Indication: GASTRIC CANCER
     Dosage: 7.5MG
     Route: 048
     Dates: start: 20100519, end: 20101022
  2. AFINITOR [Suspect]
     Dosage: 7.5MG
     Route: 048
     Dates: start: 20101026
  3. CAPECITABINE [Suspect]
     Indication: GASTRIC CANCER
     Dosage: 100MG/M2 DAY 1 TO 14 EVERY 3 WEEKS
     Route: 048
     Dates: start: 20100519, end: 20101025
  4. OXALIPLATIN [Suspect]
     Indication: GASTRIC CANCER
     Dosage: D100MG/M2 DAY 1 EVERY 3 WEEKS
     Route: 042
     Dates: start: 20100519, end: 20101015

REACTIONS (3)
  - ASTHENIA [None]
  - CONFUSIONAL STATE [None]
  - ENCEPHALOPATHY [None]
